FAERS Safety Report 6200924-9 (Version None)
Quarter: 2009Q2

REPORT INFORMATION
  Report Type: 
  Country: None (occurrence: None)
  Receive Date: 20090523
  Receipt Date: 20081119
  Transmission Date: 20091009
  Serious: Yes (Hospitalization)
  Sender: FDA-Public Use
  Company Number: US-ALEXION-A200800357

PATIENT
  Sex: Male

DRUGS (1)
  1. SOLIRIS [Suspect]
     Dosage: UNK, UNK
     Route: 042
     Dates: start: 20081013, end: 20081013

REACTIONS (1)
  - HOSPITALISATION [None]
